FAERS Safety Report 6712258-4 (Version None)
Quarter: 2010Q2

REPORT INFORMATION
  Report Type: 
  Country: None (occurrence: None)
  Receive Date: 20100505
  Receipt Date: 20100427
  Transmission Date: 20101027
  Serious: Yes (Disabling)
  Sender: FDA-Public Use
  Company Number: CA-ABBOTT-10P-028-0641261-00

PATIENT
  Sex: Male
  Weight: 98.6 kg

DRUGS (1)
  1. MAVIK [Suspect]
     Indication: ESSENTIAL HYPERTENSION
     Route: 048
     Dates: start: 20090128

REACTIONS (2)
  - QUADRIPLEGIA [None]
  - ROAD TRAFFIC ACCIDENT [None]
